FAERS Safety Report 17929858 (Version 2)
Quarter: 2020Q2

REPORT INFORMATION
  Report Type: Spontaneous
  Country: DE (occurrence: DE)
  Receive Date: 20200623
  Receipt Date: 20200629
  Transmission Date: 20200714
  Serious: Yes (Life-Threatening, Hospitalization, Other)
  Sender: FDA-Public Use
  Company Number: NVSC2020DE172641

PATIENT
  Age: 65 Year
  Sex: Female
  Weight: 69 kg

DRUGS (1)
  1. AMOXI 1000 - 1 A PHARMA [Suspect]
     Active Substance: AMOXICILLIN
     Indication: TOOTHACHE
     Dosage: 1 DF, TOTAL (NUR EINE GENOMMEN, DANN INTENSIVSTATION)
     Route: 048
     Dates: start: 20200407

REACTIONS (13)
  - Anaphylactic shock [Recovered/Resolved]
  - Dizziness [Recovering/Resolving]
  - Nausea [Recovering/Resolving]
  - Dyspnoea [Recovering/Resolving]
  - Syncope [Recovered/Resolved]
  - Headache [Unknown]
  - Burning sensation [Recovering/Resolving]
  - Hyperhidrosis [Recovering/Resolving]
  - Skin burning sensation [Recovering/Resolving]
  - Throat tightness [Recovering/Resolving]
  - Flushing [Recovering/Resolving]
  - Neck pain [Unknown]
  - Swelling face [Recovering/Resolving]

NARRATIVE: CASE EVENT DATE: 20200407
